FAERS Safety Report 10268461 (Version 1)
Quarter: 2014Q2

REPORT INFORMATION
  Report Type: Spontaneous
  Country: DE (occurrence: DK)
  Receive Date: 20140630
  Receipt Date: 20140630
  Transmission Date: 20141212
  Serious: Yes (Life-Threatening, Hospitalization)
  Sender: FDA-Public Use
  Company Number: DK-FRI-1000068553

PATIENT
  Age: 87 Year
  Sex: Female

DRUGS (1)
  1. MEMANTINE [Suspect]
     Indication: DEMENTIA ALZHEIMER^S TYPE
     Dosage: 20 MG
     Dates: start: 20140127

REACTIONS (1)
  - Pulmonary embolism [Not Recovered/Not Resolved]
